FAERS Safety Report 8841957 (Version 1)
Quarter: 2012Q4

REPORT INFORMATION
  Report Type: 
  Country: FR (occurrence: FR)
  Receive Date: 20121016
  Receipt Date: 20121016
  Transmission Date: 20130627
  Serious: Yes (Life-Threatening, Hospitalization)
  Sender: FDA-Public Use
  Company Number: PHHY2012FR090923

PATIENT
  Age: 83 Year
  Sex: Female

DRUGS (6)
  1. LEPONEX [Suspect]
     Indication: DEMENTIA
     Dosage: 2 DF, UNK
     Route: 048
     Dates: start: 20120828, end: 20120828
  2. ZOLPIDEM [Interacting]
     Dosage: 7.5 mg, Daily
     Route: 048
     Dates: start: 2011, end: 20120830
  3. LEXOMIL [Interacting]
     Dosage: 6 mg, UNK
     Route: 048
     Dates: start: 2011
  4. MODOPAR [Concomitant]
  5. LYRICA [Concomitant]
  6. CYMBALTA [Concomitant]

REACTIONS (6)
  - Coma [Recovered/Resolved]
  - Drug interaction [Recovered/Resolved]
  - Hypotension [Recovered/Resolved]
  - Pneumonia aspiration [Recovered/Resolved]
  - Hypoalbuminaemia [Recovered/Resolved]
  - Mydriasis [Recovered/Resolved]
